FAERS Safety Report 8559201-3 (Version None)
Quarter: 2012Q3

REPORT INFORMATION
  Report Type: 
  Country: None (occurrence: None)
  Receive Date: 20120802
  Receipt Date: 20120727
  Transmission Date: 20120928
  Serious: Yes (Hospitalization, Other)
  Sender: FDA-Public Use
  Company Number: US-009507513-1207USA012239

PATIENT

DRUGS (5)
  1. COZAAR [Suspect]
     Dosage: 1 DF, BID
     Route: 048
  2. RANITIDINE [Concomitant]
     Dosage: 1 DF, PRN
  3. AMLODIPINE [Suspect]
     Dosage: 20 MG, UNK
  4. DOMPERIDONE [Concomitant]
     Dosage: 1 DF, UNK
  5. FORADIL [Suspect]

REACTIONS (5)
  - FATIGUE [None]
  - CARDIAC DISORDER [None]
  - MALAISE [None]
  - SWELLING [None]
  - DYSPNOEA [None]
